FAERS Safety Report 8053748-4 (Version None)
Quarter: 2012Q1

REPORT INFORMATION
  Report Type: 
  Country: None (occurrence: None)
  Receive Date: 20120118
  Receipt Date: 20120113
  Transmission Date: 20120608
  Serious: Yes (Hospitalization)
  Sender: FDA-Public Use
  Company Number: US-PFIZER INC-2012010981

PATIENT
  Sex: Female
  Weight: 72.562 kg

DRUGS (9)
  1. CELEBREX [Concomitant]
     Dosage: UNK
  2. VERAPAMIL [Concomitant]
     Indication: MIGRAINE
     Dosage: UNK, 2X/DAY
  3. WELLBUTRIN [Concomitant]
     Indication: SMOKING CESSATION THERAPY
     Dosage: UNK
  4. NEURONTIN [Suspect]
     Indication: PAIN
  5. NEURONTIN [Suspect]
     Indication: NEUROPATHY PERIPHERAL
     Dosage: 600 MG, 3X/DAY
     Route: 048
     Dates: start: 20110101
  6. NEXIUM [Concomitant]
     Dosage: UNK
  7. NEURONTIN [Suspect]
     Indication: BACK DISORDER
     Dosage: 600MG IN THE MORNING, 300MG IN THE AFTERNOON AND 600MG AT NIGHT
  8. NEURONTIN [Suspect]
     Indication: HYPOAESTHESIA
  9. PREMARIN [Concomitant]
     Dosage: UNK

REACTIONS (6)
  - HYPOKINESIA [None]
  - SOMNOLENCE [None]
  - MIGRAINE [None]
  - PAIN IN EXTREMITY [None]
  - BURNING SENSATION [None]
  - HYPOAESTHESIA [None]
